FAERS Safety Report 15310388 (Version 4)
Quarter: 2019Q3

REPORT INFORMATION
  Report Type: Spontaneous
  Country: US (occurrence: US)
  Receive Date: 20180823
  Receipt Date: 20190822
  Transmission Date: 20191004
  Serious: No
  Sender: FDA-Public Use
  Company Number: US-VERTEX PHARMACEUTICALS-2018-005917

PATIENT
  Age: 10 Year
  Sex: Female
  Weight: 37 kg

DRUGS (20)
  1. HYPERSAL [Concomitant]
     Active Substance: SODIUM CHLORIDE
  2. CREON [Concomitant]
     Active Substance: PANCRELIPASE AMYLASE\PANCRELIPASE LIPASE\PANCRELIPASE PROTEASE
  3. VITAMIN D3 [Concomitant]
     Active Substance: CHOLECALCIFEROL
     Dosage: 2 DOSAGE FORM, QD
     Route: 048
  4. VITAMIN C [Concomitant]
     Active Substance: ASCORBIC ACID
     Dosage: 1 DOSAGE FORM, QD
  5. FLUTICASONE. [Concomitant]
     Active Substance: FLUTICASONE
  6. MIRALAX [Concomitant]
     Active Substance: POLYETHYLENE GLYCOL 3350
     Dosage: 17GRAMS MIX WITH 8 OZ OF WATER ONCE DAILY
  7. PROAIR HFA [Concomitant]
     Active Substance: ALBUTEROL SULFATE
     Dosage: 2-4 PUFFS TWICE DAILY
  8. DEXTROSE. [Concomitant]
     Active Substance: DEXTROSE
  9. VITAMAX [Concomitant]
  10. ZITHROMAX [Concomitant]
     Active Substance: AZITHROMYCIN DIHYDRATE
  11. ALBUTEROL                          /00139501/ [Concomitant]
     Active Substance: ALBUTEROL
  12. FLONASE                            /00908302/ [Concomitant]
     Active Substance: MOMETASONE FUROATE
  13. SODIUM CHLORIDE. [Concomitant]
     Active Substance: SODIUM CHLORIDE
     Route: 055
  14. CAYSTON [Concomitant]
     Active Substance: AZTREONAM
     Indication: CYSTIC FIBROSIS
     Dosage: 75 MG, TID EVERY OTHER MONTH
     Route: 055
     Dates: start: 20150508
  15. PULMOZYME [Concomitant]
     Active Substance: DORNASE ALFA
     Indication: CYSTIC FIBROSIS
     Dosage: 1 DOSAGE FORM, BID
     Route: 055
     Dates: start: 20171017
  16. TOBRAMYCIN. [Concomitant]
     Active Substance: TOBRAMYCIN
     Indication: CYSTIC FIBROSIS
     Dosage: 300 MG, BID
     Route: 055
     Dates: start: 20151119
  17. OMEPRAZOLE. [Concomitant]
     Active Substance: OMEPRAZOLE
  18. AZITHROMYCIN ANHYDROUS. [Concomitant]
     Active Substance: AZITHROMYCIN ANHYDROUS
  19. ORKAMBI [Suspect]
     Active Substance: IVACAFTOR\LUMACAFTOR
     Indication: CYSTIC FIBROSIS
     Dosage: 2 DOSAGE FORM, BID
     Route: 048
     Dates: start: 20161029
  20. CEFTAZIDIME. [Concomitant]
     Active Substance: CEFTAZIDIME

REACTIONS (3)
  - Bronchitis [Recovered/Resolved]
  - Lung infection [Recovered/Resolved]
  - Infective pulmonary exacerbation of cystic fibrosis [Recovered/Resolved]

NARRATIVE: CASE EVENT DATE: 201806
